FAERS Safety Report 6731785-7 (Version None)
Quarter: 2010Q2

REPORT INFORMATION
  Report Type: 
  Country: None (occurrence: None)
  Receive Date: 20100519
  Receipt Date: 20100510
  Transmission Date: 20101027
  Serious: Yes (Life-Threatening, Hospitalization, Other)
  Sender: FDA-Public Use
  Company Number: JP-PFIZER INC-2010049428

PATIENT
  Age: 69 Year
  Sex: Male

DRUGS (4)
  1. SUNITINIB MALATE [Suspect]
     Indication: RENAL CELL CARCINOMA
     Dosage: 50 MG, 1X/DAY
     Route: 048
     Dates: start: 20100302
  2. MORPHINE HYDROCHLORIDE [Concomitant]
     Indication: TUMOUR PAIN
     Dosage: UNK
     Route: 054
     Dates: start: 20100315, end: 20100331
  3. ADALAT CC [Concomitant]
     Indication: HYPERTENSION
     Dosage: UNK
     Route: 048
     Dates: start: 20100315
  4. CANDESARTAN CILEXETIL [Concomitant]
     Indication: HYPERTENSION
     Dosage: UNK
     Route: 048
     Dates: start: 20100315

REACTIONS (8)
  - DISSEMINATED INTRAVASCULAR COAGULATION [None]
  - HYPERTENSION [None]
  - INTERNATIONAL NORMALISED RATIO INCREASED [None]
  - NAUSEA [None]
  - PLATELET COUNT DECREASED [None]
  - PNEUMONIA [None]
  - SUBARACHNOID HAEMORRHAGE [None]
  - VOMITING [None]
